FAERS Safety Report 21602758 (Version 1)
Quarter: 2022Q4

REPORT INFORMATION
  Report Type: Spontaneous
  Country: US (occurrence: None)
  Receive Date: 20221115
  Receipt Date: 20221115
  Transmission Date: 20230112
  Serious: Yes (Other)
  Sender: FDA-Public Use
  Company Number: None

PATIENT
  Age: 6 Year
  Sex: Male
  Weight: 17.33 kg

DRUGS (2)
  1. CLONIDINE [Suspect]
     Active Substance: CLONIDINE
     Indication: Aggression
     Dosage: 0.8 ML EVERY 6 HOURS ORAL?
     Route: 048
     Dates: start: 20221110, end: 20221111
  2. CLONIDINE [Concomitant]
     Active Substance: CLONIDINE
     Dates: start: 20200303, end: 20221111

REACTIONS (1)
  - Heart rate decreased [None]

NARRATIVE: CASE EVENT DATE: 20221110
